FAERS Safety Report 4765755-5 (Version None)
Quarter: 2005Q3

REPORT INFORMATION
  Report Type: 
  Country: None (occurrence: None)
  Receive Date: 20050912
  Receipt Date: 20050902
  Transmission Date: 20060218
  Serious: Yes (Hospitalization)
  Sender: FDA-Public Use
  Company Number: 2005UW13196

PATIENT
  Age: 76 Year
  Sex: Male
  Weight: 65 kg

DRUGS (15)
  1. IRESSA [Suspect]
     Indication: ADENOCARCINOMA PANCREAS
     Route: 048
     Dates: start: 20050801, end: 20050822
  2. DOCETAXEL [Suspect]
     Indication: ADENOCARCINOMA PANCREAS
     Route: 042
     Dates: start: 20050801
  3. AEROBID [Concomitant]
     Dates: start: 20041109
  4. COMBIVENT [Concomitant]
     Dates: start: 20041109
  5. DECADRON [Concomitant]
     Dates: start: 20050727
  6. LORAZEPAM [Concomitant]
     Dates: start: 20050222
  7. MAGNESIUM OXIDE [Concomitant]
     Dates: start: 20041223
  8. MEGACE [Concomitant]
     Dates: start: 20050801
  9. METFORMIN [Concomitant]
     Dates: start: 20041109
  10. METHYLPHENIDATE HCL [Concomitant]
     Dates: start: 20050525
  11. MULTI-VITAMIN [Concomitant]
     Dates: start: 20041109
  12. REMERON [Concomitant]
     Dates: start: 20050321
  13. TRAVATAN [Concomitant]
     Dates: start: 20050207
  14. ZOCOR [Concomitant]
     Dates: start: 20041109
  15. ZOFRAN [Concomitant]
     Dates: start: 20041206

REACTIONS (7)
  - CHILLS [None]
  - DEHYDRATION [None]
  - DIARRHOEA [None]
  - FATIGUE [None]
  - HYPONATRAEMIA [None]
  - ORAL INTAKE REDUCED [None]
  - PYREXIA [None]
